FAERS Safety Report 6778994-9 (Version None)
Quarter: 2010Q2

REPORT INFORMATION
  Report Type: 
  Country: None (occurrence: None)
  Receive Date: 20100618
  Receipt Date: 20100609
  Transmission Date: 20101027
  Serious: Yes (Other)
  Sender: FDA-Public Use
  Company Number: FR-ASTRAZENECA-2010SE27024

PATIENT
  Age: 733 Month
  Sex: Female

DRUGS (1)
  1. NEXIUM [Suspect]
     Indication: ABDOMINAL PAIN UPPER
     Route: 048
     Dates: start: 20100501, end: 20100602

REACTIONS (3)
  - ABDOMINAL PAIN [None]
  - PELVIC CONGESTION [None]
  - UROGENITAL HAEMORRHAGE [None]
